FAERS Safety Report 8171708-X (Version None)
Quarter: 2012Q1

REPORT INFORMATION
  Report Type: 
  Country: None (occurrence: None)
  Receive Date: 20120228
  Receipt Date: 20120213
  Transmission Date: 20120608
  Serious: Yes (Hospitalization)
  Sender: FDA-Public Use
  Company Number: NL-MEDIMMUNE-MEDI-0014418

PATIENT
  Sex: Female
  Weight: 3 kg

DRUGS (4)
  1. CHILDHOOD VACCINATIONS UNSPECIFIED [Concomitant]
     Dates: start: 20120103
  2. SYNAGIS [Suspect]
     Indication: PREMATURE BABY
     Route: 030
     Dates: start: 20111208, end: 20111208
  3. FERRIC PYROPHOSPHATE [Concomitant]
     Dates: end: 20120102
  4. SYNAGIS [Suspect]
     Route: 030
     Dates: start: 20120105

REACTIONS (19)
  - PALLOR [None]
  - DYSPNOEA [None]
  - ABDOMINAL DISTENSION [None]
  - FLUID INTAKE REDUCED [None]
  - ABNORMAL FAECES [None]
  - RESPIRATORY DISORDER [None]
  - TACHYPNOEA [None]
  - RESPIRATORY TRACT INFECTION [None]
  - RHINOVIRUS INFECTION [None]
  - NASOPHARYNGITIS [None]
  - RHINORRHOEA [None]
  - ORAL CANDIDIASIS [None]
  - RESPIRATORY FAILURE [None]
  - APNOEA [None]
  - SKIN DISCOLOURATION [None]
  - COUGH [None]
  - PYREXIA [None]
  - HYPOPHAGIA [None]
  - SOMNOLENCE [None]
